FAERS Safety Report 13113866 (Version 4)
Quarter: 2018Q1

REPORT INFORMATION
  Report Type: Spontaneous
  Country: US (occurrence: US)
  Receive Date: 20170113
  Receipt Date: 20180115
  Transmission Date: 20180508
  Serious: No
  Sender: FDA-Public Use
  Company Number: US-LUNDBECK-DKLU2020700

PATIENT
  Sex: Female

DRUGS (3)
  1. NORTHERA [Suspect]
     Active Substance: DROXIDOPA
     Indication: PRODUCT USED FOR UNKNOWN INDICATION
     Route: 065
     Dates: start: 20170308
  2. NORTHERA [Suspect]
     Active Substance: DROXIDOPA
     Route: 065
  3. NORTHERA [Suspect]
     Active Substance: DROXIDOPA
     Dosage: SCHEDULE B
     Route: 065

REACTIONS (21)
  - Asthenia [Unknown]
  - Lung disorder [Unknown]
  - Nausea [Unknown]
  - Nipple pain [Not Recovered/Not Resolved]
  - Neck pain [Not Recovered/Not Resolved]
  - Temperature regulation disorder [Unknown]
  - Fall [Recovered/Resolved]
  - Fatigue [Recovered/Resolved]
  - Headache [Unknown]
  - Dizziness [Recovering/Resolving]
  - Hypoaesthesia [Unknown]
  - Vomiting [Unknown]
  - Dysphagia [Unknown]
  - Crepitations [Not Recovered/Not Resolved]
  - Therapeutic response unexpected [Recovered/Resolved]
  - Hypotension [Unknown]
  - Dyspnoea [Not Recovered/Not Resolved]
  - Vision blurred [Unknown]
  - Pruritus [Not Recovered/Not Resolved]
  - Tongue disorder [Unknown]
  - Chest pain [Unknown]
